FAERS Safety Report 14531355 (Version 1)
Quarter: 2018Q1

REPORT INFORMATION
  Report Type: Spontaneous
  Country: DE (occurrence: DE)
  Receive Date: 20180214
  Receipt Date: 20180214
  Transmission Date: 20180509
  Serious: Yes (Other)
  Sender: FDA-Public Use
  Company Number: DE-BAYER-2018-021195

PATIENT
  Age: 27 Year
  Sex: Female

DRUGS (1)
  1. JAYDESS [Suspect]
     Active Substance: LEVONORGESTREL
     Dosage: 14 MCG/24HR, CONT
     Route: 015
     Dates: start: 20150924, end: 20180124

REACTIONS (6)
  - Drug ineffective [None]
  - Pregnancy with contraceptive device [Unknown]
  - Haemorrhage in pregnancy [None]
  - Complication of pregnancy [None]
  - Subchorionic haematoma [None]
  - Abortion spontaneous [None]

NARRATIVE: CASE EVENT DATE: 201801
